FAERS Safety Report 4762257-7 (Version None)
Quarter: 2005Q3

REPORT INFORMATION
  Report Type: 
  Country: None (occurrence: None)
  Receive Date: 20050901
  Receipt Date: 20050516
  Transmission Date: 20060218
  Serious: No
  Sender: FDA-Public Use
  Company Number: 200510974BWH

PATIENT
  Age: 51 Year
  Sex: Male

DRUGS (5)
  1. LEVITRA [Suspect]
     Indication: ERECTILE DYSFUNCTION
     Dosage: PRN, ORAL
     Route: 048
     Dates: start: 20050401
  2. LOTREL [Concomitant]
  3. DAILY VITAMIN [Concomitant]
  4. ASCORBIC ACID [Concomitant]
  5. B 12 [Concomitant]

REACTIONS (4)
  - DYSPEPSIA [None]
  - FEELING COLD [None]
  - HEADACHE [None]
  - NASAL CONGESTION [None]
